FAERS Safety Report 17218841 (Version 2)
Quarter: 2020Q1

REPORT INFORMATION
  Report Type: Spontaneous
  Country: US (occurrence: US)
  Receive Date: 20191231
  Receipt Date: 20200317
  Transmission Date: 20200409
  Serious: No
  Sender: FDA-Public Use
  Company Number: US-STRONGBRIDGE BIOPHARMA-2019-STR-000329

PATIENT
  Age: 55 Year
  Sex: Female

DRUGS (1)
  1. KEVEYIS [Suspect]
     Active Substance: DICHLORPHENAMIDE
     Indication: FAMILIAL PERIODIC PARALYSIS
     Dosage: 50 MG, BID
     Route: 048

REACTIONS (8)
  - Respiratory tract infection [Recovering/Resolving]
  - Tinnitus [Recovering/Resolving]
  - Weight decreased [Recovering/Resolving]
  - Tinnitus [Recovering/Resolving]
  - Sinusitis [Recovering/Resolving]
  - Hypersensitivity [Recovering/Resolving]
  - Dysgeusia [Recovering/Resolving]
  - Vertigo [Recovering/Resolving]

NARRATIVE: CASE EVENT DATE: 201912
